FAERS Safety Report 20645710 (Version 6)
Quarter: 2024Q3

REPORT INFORMATION
  Report Type: Spontaneous
  Country: US (occurrence: US)
  Receive Date: 20220328
  Receipt Date: 20240715
  Transmission Date: 20241017
  Serious: No
  Sender: SANOFI AVENTIS
  Company Number: US-SANOFI-01021453

PATIENT
  Sex: Male

DRUGS (2)
  1. LANTUS SOLOSTAR [Suspect]
     Active Substance: INSULIN GLARGINE
     Indication: Diabetes mellitus
     Dosage: 130 IU, BID, 80 UNITS OF LANTUS IN THE MORNING, AND 50 UNITS IN THE EVENING
     Route: 065
  2. LANTUS SOLOSTAR [Suspect]
     Active Substance: INSULIN GLARGINE
     Indication: Type 2 diabetes mellitus

REACTIONS (6)
  - Asthenia [Unknown]
  - Injection site erythema [Unknown]
  - Skin discolouration [Unknown]
  - Inappropriate schedule of product administration [Unknown]
  - Product storage error [Unknown]
  - Multiple use of single-use product [Unknown]
